FAERS Safety Report 8378578-5 (Version None)
Quarter: 2012Q2

REPORT INFORMATION
  Report Type: 
  Country: None (occurrence: None)
  Receive Date: 20120522
  Receipt Date: 20110701
  Transmission Date: 20120825
  Serious: No
  Sender: FDA-Public Use
  Company Number: US-ASTRAZENECA-2011SE40070

PATIENT
  Age: 80 Year
  Sex: Female

DRUGS (4)
  1. ALIGN [Suspect]
     Dosage: ONCE DAILY
     Route: 048
     Dates: start: 20110612
  2. VITAMIN TAB [Concomitant]
  3. PRILOSEC [Suspect]
     Dosage: ONCE DAILY
     Route: 048
     Dates: start: 20110612
  4. PREMARIN [Concomitant]

REACTIONS (11)
  - ABDOMINAL PAIN UPPER [None]
  - HEADACHE [None]
  - DYSPEPSIA [None]
  - MOUTH ULCERATION [None]
  - NAUSEA [None]
  - TONGUE ULCERATION [None]
  - ABDOMINAL DISTENSION [None]
  - ORAL PAIN [None]
  - GLOSSODYNIA [None]
  - FLATULENCE [None]
  - DYSGEUSIA [None]
